FAERS Safety Report 6802769-5 (Version None)
Quarter: 2010Q2

REPORT INFORMATION
  Report Type: 
  Country: None (occurrence: None)
  Receive Date: 20100628
  Receipt Date: 20100205
  Transmission Date: 20101027
  Serious: Yes (Death)
  Sender: FDA-Public Use
  Company Number: US-ASTRAZENECA-2009SE14963

PATIENT
  Age: 63 Year
  Sex: Male

DRUGS (3)
  1. SEROQUEL [Suspect]
     Indication: SLEEP DISORDER
     Dosage: 50 TO 150 MG QHS
     Route: 048
     Dates: start: 20011201
  2. TRILEPTAL [Concomitant]
     Dosage: 75 TO 450 MG
     Dates: start: 20011201
  3. BUSPAR [Concomitant]
     Dates: start: 20011201

REACTIONS (2)
  - CARDIAC DISORDER [None]
  - DIABETES MELLITUS [None]
